FAERS Safety Report 9968720 (Version 1)
Quarter: 2014Q1

REPORT INFORMATION
  Report Type: Report from Study
  Country: US (occurrence: US)
  Receive Date: 20140306
  Receipt Date: 20140306
  Transmission Date: 20141002
  Serious: No
  Sender: FDA-Public Use
  Company Number: US-ABBVIE-13P-163-1142170-00

PATIENT
  Age: 51 Year
  Sex: Female

DRUGS (8)
  1. HUMIRA [Suspect]
     Indication: RHEUMATOID ARTHRITIS
     Dates: start: 20130723
  2. EXFORGE [Concomitant]
     Indication: HYPERTENSION
     Dosage: DAILY
  3. METOPROLOL [Concomitant]
     Indication: HYPERTENSION
     Dosage: DAILY
  4. ZOLOFT [Concomitant]
     Indication: ANXIETY
     Dosage: DAILY
  5. METFORMIN [Concomitant]
     Indication: DIABETES MELLITUS
     Dosage: DAILY
  6. KLONOPIN [Concomitant]
     Indication: ANXIETY
  7. ZYRTEC [Concomitant]
     Indication: SEASONAL ALLERGY
  8. ZITHROMAX [Concomitant]
     Indication: PRODUCT USED FOR UNKNOWN INDICATION

REACTIONS (3)
  - Headache [Recovering/Resolving]
  - Nausea [Recovering/Resolving]
  - Pharyngitis streptococcal [Recovering/Resolving]
